FAERS Safety Report 9413263 (Version 2)
Quarter: 2014Q1

REPORT INFORMATION
  Report Type: Spontaneous
  Country: US (occurrence: US)
  Receive Date: 20130722
  Receipt Date: 20140320
  Transmission Date: 20141002
  Serious: No
  Sender: FDA-Public Use
  Company Number: US-009507513-1307USA010397

PATIENT
  Sex: Male

DRUGS (2)
  1. PROPECIA [Suspect]
     Indication: ALOPECIA
     Dosage: 1 MG, QD
     Route: 048
     Dates: start: 2001
  2. FINASTERIDE [Suspect]
     Indication: ALOPECIA
     Dosage: 1 MG, QD
     Route: 048
     Dates: start: 20130417

REACTIONS (15)
  - Erectile dysfunction [Not Recovered/Not Resolved]
  - Sexual dysfunction [Not Recovered/Not Resolved]
  - Depression [Unknown]
  - Insomnia [Unknown]
  - Benign prostatic hyperplasia [Unknown]
  - Nocturia [Unknown]
  - Hypertension [Unknown]
  - Umbilical hernia [Unknown]
  - Libido decreased [Unknown]
  - Gastrooesophageal reflux disease [Unknown]
  - Seasonal allergy [Unknown]
  - Knee arthroplasty [Unknown]
  - Umbilical hernia repair [Unknown]
  - Arthralgia [Unknown]
  - Genital herpes [Unknown]
